FAERS Safety Report 8247475-8 (Version None)
Quarter: 2012Q1

REPORT INFORMATION
  Report Type: 
  Country: None (occurrence: None)
  Receive Date: 20120330
  Receipt Date: 20120315
  Transmission Date: 20120608
  Serious: Yes (Hospitalization, Other)
  Sender: FDA-Public Use
  Company Number: FR-CELGENEUS-056-21880-12031900

PATIENT
  Sex: Male
  Weight: 95 kg

DRUGS (13)
  1. BACTRIM [Concomitant]
     Indication: ANTI-INFECTIVE THERAPY
     Route: 065
     Dates: start: 20090101
  2. ASPEGIC 1000 [Concomitant]
     Indication: THROMBOSIS PROPHYLAXIS
     Route: 065
     Dates: start: 20110901
  3. VELCADE [Suspect]
     Dosage: .5714 MILLIGRAM
     Route: 065
     Dates: start: 20110901
  4. DEXAMETHASONE [Concomitant]
     Route: 065
     Dates: start: 20110901
  5. FLUCONAZOLE [Concomitant]
     Indication: ANTIFUNGAL PROPHYLAXIS
     Route: 065
     Dates: start: 20101001
  6. REVLIMID [Suspect]
     Dosage: 2.5 MILLIGRAM
     Route: 048
     Dates: start: 20110901
  7. AMLODIPINE BESYLATE [Concomitant]
     Route: 065
     Dates: start: 20110901
  8. ACYCLOVIR [Concomitant]
     Indication: ANTIVIRAL PROPHYLAXIS
     Route: 065
     Dates: start: 20090101
  9. LYRICA [Concomitant]
     Route: 065
     Dates: start: 20111101
  10. OXYCONTIN [Concomitant]
     Indication: PAIN
     Route: 065
     Dates: start: 20090101
  11. REVLIMID [Suspect]
     Dosage: 1.5 MILLIGRAM
     Route: 048
  12. PHENOXYMETHYL PENICILLIN [Concomitant]
     Indication: ANTI-INFECTIVE THERAPY
     Route: 065
     Dates: start: 20090101
  13. OXYCODONE HCL [Concomitant]
     Indication: PAIN
     Route: 065
     Dates: start: 20090101

REACTIONS (9)
  - NEUROPATHY PERIPHERAL [None]
  - DRY SKIN [None]
  - ECZEMA [None]
  - PLATELET COUNT DECREASED [None]
  - WEIGHT DECREASED [None]
  - LIBIDO DISORDER [None]
  - INFLUENZA [None]
  - MYALGIA [None]
  - LUNG DISORDER [None]
